FAERS Safety Report 6804146-X (Version None)
Quarter: 2010Q2

REPORT INFORMATION
  Report Type: 
  Country: None (occurrence: None)
  Receive Date: 20100628
  Receipt Date: 20070830
  Transmission Date: 20101027
  Serious: Yes (Other)
  Sender: FDA-Public Use
  Company Number: US-PFIZER INC-2007000003

PATIENT
  Sex: Male

DRUGS (3)
  1. SUTENT [Suspect]
     Indication: METASTATIC RENAL CELL CARCINOMA
     Route: 048
     Dates: start: 20061015, end: 20061215
  2. PERCOCET [Concomitant]
  3. AUGMENTIN '125' [Concomitant]

REACTIONS (5)
  - DECREASED APPETITE [None]
  - MYALGIA [None]
  - ORAL PAIN [None]
  - PAIN IN JAW [None]
  - TOOTH INFECTION [None]
